FAERS Safety Report 7603295-6 (Version None)
Quarter: 2011Q3

REPORT INFORMATION
  Report Type: 
  Country: None (occurrence: None)
  Receive Date: 20110712
  Receipt Date: 20110628
  Transmission Date: 20111222
  Serious: Yes (Hospitalization)
  Sender: FDA-Public Use
  Company Number: PHHY2011NL57597

PATIENT
  Sex: Female

DRUGS (1)
  1. DICLOFENAC SODIUM [Suspect]
     Indication: TENDONITIS
     Dosage: 3 DF, TID
     Route: 048
     Dates: start: 20110112, end: 20110118

REACTIONS (3)
  - MALAISE [None]
  - FATIGUE [None]
  - OPTIC NEURITIS [None]
